FAERS Safety Report 9433324 (Version 2)
Quarter: 2013Q3

REPORT INFORMATION
  Report Type: Spontaneous
  Country: DE (occurrence: DE)
  Receive Date: 20130731
  Receipt Date: 20130804
  Transmission Date: 20140515
  Serious: Yes (Other)
  Sender: FDA-Public Use
  Company Number: DE-JNJFOC-20130715547

PATIENT
  Age: 78 Year
  Sex: Female
  Weight: 64 kg

DRUGS (8)
  1. XARELTO [Suspect]
     Indication: CEREBROVASCULAR ACCIDENT PROPHYLAXIS
     Route: 048
  2. XARELTO [Suspect]
     Indication: ATRIAL FIBRILLATION
     Route: 048
  3. AMLODIPINE [Concomitant]
     Route: 065
  4. TORASEMID [Concomitant]
     Route: 065
  5. SIMVASTATIN [Concomitant]
     Route: 065
  6. METOPROLOL [Concomitant]
     Route: 065
  7. SPIRONOLACTON [Concomitant]
     Route: 065
  8. BENALAPRIL [Concomitant]
     Route: 065

REACTIONS (3)
  - Syncope [Recovering/Resolving]
  - Haematoma [Recovering/Resolving]
  - Fall [Recovering/Resolving]
